FAERS Safety Report 4441206-5 (Version None)
Quarter: 2004Q3

REPORT INFORMATION
  Report Type: 
  Country: None (occurrence: None)
  Receive Date: 20040728
  Receipt Date: 20040331
  Transmission Date: 20050211
  Serious: No
  Sender: FDA-Public Use
  Company Number: USA040463712

PATIENT
  Age: 3 Year
  Sex: Female
  Weight: 18 kg

DRUGS (1)
  1. STRATTERA [Suspect]
     Indication: ATTENTION DEFICIT/HYPERACTIVITY DISORDER
     Dosage: 10 MG IN THE MORNING
     Dates: start: 20040101

REACTIONS (5)
  - ANOREXIA [None]
  - CHOKING [None]
  - HYPERSOMNIA [None]
  - SINUSITIS [None]
  - VOMITING [None]
